FAERS Safety Report 25447361 (Version 2)
Quarter: 2025Q3

REPORT INFORMATION
  Report Type: Spontaneous
  Country: US (occurrence: US)
  Receive Date: 20250617
  Receipt Date: 20250910
  Transmission Date: 20251020
  Serious: No
  Sender: SANOFI AVENTIS
  Company Number: US-SA-2025SA170043

PATIENT
  Age: 5 Year
  Sex: Male

DRUGS (1)
  1. DUPIXENT [Suspect]
     Active Substance: DUPILUMAB
     Indication: Dermatitis atopic
     Dosage: 300 MG, Q4W
     Route: 058

REACTIONS (7)
  - Influenza like illness [Not Recovered/Not Resolved]
  - Dry skin [Unknown]
  - Skin fissures [Unknown]
  - Nasopharyngitis [Not Recovered/Not Resolved]
  - Erythema [Unknown]
  - Pruritus [Unknown]
  - Therapeutic response shortened [Unknown]
